FAERS Safety Report 19138508 (Version 4)
Quarter: 2021Q2

REPORT INFORMATION
  Report Type: Report from Study
  Country: IT (occurrence: IT)
  Receive Date: 20210415
  Receipt Date: 20210617
  Transmission Date: 20210717
  Serious: Yes (Death, Hospitalization)
  Sender: FDA-Public Use
  Company Number: IT-ROCHE-2159337

PATIENT
  Age: 73 Year
  Sex: Male
  Weight: 57 kg

DRUGS (4)
  1. LEVOPRAID [Concomitant]
     Route: 048
  2. ATEZOLIZUMAB. [Suspect]
     Active Substance: ATEZOLIZUMAB
     Indication: NON-SMALL CELL LUNG CANCER METASTATIC
     Dosage: DATE OF MOST RECENT DOSE OF ATEZOLIZUMAB PRIOR TO SAE ONSET: 05/JUL/2018 AT 11:33 TO 12:33
     Route: 041
     Dates: start: 20180705
  3. PIRACETAM [Concomitant]
     Active Substance: PIRACETAM
     Indication: ENCEPHALITIS
     Route: 048
     Dates: start: 20180720, end: 20180911
  4. SERTRALINE [Concomitant]
     Active Substance: SERTRALINE HYDROCHLORIDE
     Route: 048

REACTIONS (1)
  - Encephalitis [Recovered/Resolved]

NARRATIVE: CASE EVENT DATE: 20180720
